FAERS Safety Report 8353209-9 (Version None)
Quarter: 2012Q2

REPORT INFORMATION
  Report Type: 
  Country: None (occurrence: None)
  Receive Date: 20120511
  Receipt Date: 20120504
  Transmission Date: 20120825
  Serious: Yes (Hospitalization)
  Sender: FDA-Public Use
  Company Number: US-ASTRAZENECA-2011SE65999

PATIENT
  Age: 51 Year
  Sex: Female
  Weight: 81.6 kg

DRUGS (10)
  1. LOPRESSOR [Concomitant]
     Indication: MYOCARDIAL INFARCTION
  2. CLONAZEPAM [Concomitant]
     Indication: PANIC ATTACK
  3. CRESTOR [Suspect]
     Route: 048
  4. CRESTOR [Suspect]
     Route: 048
  5. ZOCOR [Concomitant]
     Indication: BLOOD CHOLESTEROL ABNORMAL
  6. PLAVIX [Concomitant]
  7. CRESTOR [Suspect]
     Indication: BLOOD CHOLESTEROL ABNORMAL
     Route: 048
     Dates: start: 20110822, end: 20110922
  8. SOMA [Concomitant]
     Indication: MUSCLE RELAXANT THERAPY
  9. CRESTOR [Suspect]
     Indication: BLOOD TRIGLYCERIDES ABNORMAL
     Route: 048
     Dates: start: 20110822, end: 20110922
  10. BLOOD THINNER [Concomitant]

REACTIONS (9)
  - RASH PUSTULAR [None]
  - URTICARIA [None]
  - PRURITUS [None]
  - HOT FLUSH [None]
  - PAIN [None]
  - MALAISE [None]
  - SCAR [None]
  - ADVERSE DRUG REACTION [None]
  - RASH GENERALISED [None]
